FAERS Safety Report 21357671 (Version 1)
Quarter: 2022Q3

REPORT INFORMATION
  Report Type: Spontaneous
  Country: US (occurrence: US)
  Receive Date: 20220921
  Receipt Date: 20220921
  Transmission Date: 20221026
  Serious: No
  Sender: FDA-Public Use
  Company Number: US-UROGEN PHARMA LTD.-2022-UGN-000081

PATIENT

DRUGS (3)
  1. JELMYTO [Suspect]
     Active Substance: MITOMYCIN
     Indication: Transitional cell cancer of the renal pelvis and ureter
     Dosage: 7 MILLILITER, ONE TIME PER WEEK (INSTILLATION)
     Dates: start: 20220712, end: 20220712
  2. JELMYTO [Suspect]
     Active Substance: MITOMYCIN
     Dosage: 7 MILLILITER, ONE TIME PER WEEK (INSTILLATION)
     Dates: start: 20220719, end: 20220719
  3. JELMYTO [Suspect]
     Active Substance: MITOMYCIN
     Dosage: 7 MILLILITER, ONE TIME PER WEEK (INSTILLATION)
     Dates: start: 20220726, end: 20220726

REACTIONS (1)
  - Rash [Recovered/Resolved]

NARRATIVE: CASE EVENT DATE: 20220726
